FAERS Safety Report 8222315-1 (Version None)
Quarter: 2012Q1

REPORT INFORMATION
  Report Type: 
  Country: None (occurrence: None)
  Receive Date: 20120320
  Receipt Date: 20120312
  Transmission Date: 20120608
  Serious: Yes (Other)
  Sender: FDA-Public Use
  Company Number: JP-GLAXOSMITHKLINE-B0789103A

PATIENT
  Sex: Female

DRUGS (1)
  1. BECLOMETHASONE DIPROPIONATE [Suspect]
     Indication: PHOTOSENSITIVITY REACTION
     Dosage: 5G PER DAY
     Route: 061

REACTIONS (5)
  - EYE DISORDER [None]
  - VISUAL FIELD DEFECT [None]
  - PALPITATIONS [None]
  - VISUAL ACUITY REDUCED [None]
  - EYELID PTOSIS [None]
